FAERS Safety Report 23635130 (Version 2)
Quarter: 2024Q2

REPORT INFORMATION
  Report Type: Spontaneous
  Country: US (occurrence: US)
  Receive Date: 20240315
  Receipt Date: 20240401
  Transmission Date: 20240715
  Serious: Yes (Hospitalization, Other)
  Sender: FDA-Public Use
  Company Number: US-TEVA-VS-3167327

PATIENT
  Age: 64 Year
  Sex: Male

DRUGS (3)
  1. VANCOMYCIN [Suspect]
     Active Substance: VANCOMYCIN
     Indication: Device related infection
     Route: 065
  2. GENTAMICIN [Suspect]
     Active Substance: GENTAMICIN
     Indication: Device related infection
     Route: 065
  3. AMIKACIN [Suspect]
     Active Substance: AMIKACIN
     Indication: Device related infection
     Route: 042

REACTIONS (2)
  - Acute kidney injury [Unknown]
  - Drug ineffective [Unknown]
